FAERS Safety Report 7475867-3 (Version None)
Quarter: 2011Q2

REPORT INFORMATION
  Report Type: 
  Country: None (occurrence: None)
  Receive Date: 20110512
  Receipt Date: 20110506
  Transmission Date: 20111010
  Serious: Yes (Death)
  Sender: FDA-Public Use
  Company Number: US-AMGEN-USASP2011023895

PATIENT
  Age: 89 Year
  Sex: Male

DRUGS (1)
  1. NPLATE [Suspect]
     Indication: MYELODYSPLASTIC SYNDROME
     Dosage: 80 A?G, UNK
     Dates: start: 20110427, end: 20110505

REACTIONS (1)
  - DEATH [None]
